FAERS Safety Report 5207829-0 (Version None)
Quarter: 2007Q1

REPORT INFORMATION
  Report Type: 
  Country: None (occurrence: None)
  Receive Date: 20070112
  Receipt Date: 20070103
  Transmission Date: 20070707
  Serious: Yes (Hospitalization)
  Sender: FDA-Public Use
  Company Number: FR-PFIZER INC-2007001517

PATIENT
  Age: 33 Year
  Sex: Female

DRUGS (3)
  1. XANAX [Suspect]
     Indication: SCHIZOPHRENIA
     Route: 048
  2. TERCIAN [Concomitant]
     Route: 048
  3. OLANZAPINE [Concomitant]
     Route: 048

REACTIONS (3)
  - COMA [None]
  - DRUG TOXICITY [None]
  - RESPIRATORY FAILURE [None]
